FAERS Safety Report 5704163-7 (Version None)
Quarter: 2008Q2

REPORT INFORMATION
  Report Type: 
  Country: None (occurrence: None)
  Receive Date: 20080409
  Receipt Date: 20080328
  Transmission Date: 20081010
  Serious: Yes (Death, Hospitalization)
  Sender: FDA-Public Use
  Company Number: GXKR2008AT03084

PATIENT
  Age: 88 Year
  Sex: Male

DRUGS (2)
  1. METHIMAZOLE [Suspect]
     Indication: HYPERTHYROIDISM
     Dosage: 20 MG, BID, ORAL
     Route: 048
     Dates: start: 20071210, end: 20080220
  2. CARBIMAZOLE         (CARBIMAZOLE) [Suspect]
     Indication: HYPERTHYROIDISM
     Dosage: ORAL
     Route: 048
     Dates: start: 20071203, end: 20071210

REACTIONS (6)
  - AGRANULOCYTOSIS [None]
  - APNOEA [None]
  - ASPERGILLOSIS [None]
  - HEPATIC FAILURE [None]
  - HERPES DERMATITIS [None]
  - HYPOTENSION [None]
